FAERS Safety Report 6017548-9 (Version None)
Quarter: 2008Q4

REPORT INFORMATION
  Report Type: 
  Country: None (occurrence: None)
  Receive Date: 20081219
  Receipt Date: 20081202
  Transmission Date: 20090506
  Serious: Yes (Hospitalization)
  Sender: FDA-Public Use
  Company Number: 2008S1021062

PATIENT
  Age: 46 Year
  Sex: Female

DRUGS (6)
  1. METFORMIN HCL [Suspect]
     Indication: TYPE 2 DIABETES MELLITUS
     Dosage: 850 MG;3 TIMES A DAY;
  2. NOVOLOG MIX 70/30 [Concomitant]
  3. RAMIPRIL [Concomitant]
  4. CITALOPRAM [Concomitant]
  5. QUETIAPINE [Concomitant]
  6. PROCYCLIDINE HYDROCHLORIDE 2MG TAB [Concomitant]

REACTIONS (15)
  - ABDOMINAL PAIN [None]
  - AGITATION [None]
  - BLOOD POTASSIUM INCREASED [None]
  - C-REACTIVE PROTEIN INCREASED [None]
  - CONTINUOUS HAEMODIAFILTRATION [None]
  - DEHYDRATION [None]
  - DRUG LEVEL ABOVE THERAPEUTIC [None]
  - FLUID RETENTION [None]
  - HEART RATE INCREASED [None]
  - HYPOTHERMIA [None]
  - INFLAMMATION [None]
  - LACTIC ACIDOSIS [None]
  - RENAL FAILURE ACUTE [None]
  - TONGUE ULCERATION [None]
  - VOMITING [None]
